FAERS Safety Report 22110622 (Version 1)
Quarter: 2023Q1

REPORT INFORMATION
  Report Type: Spontaneous
  Country: US (occurrence: None)
  Receive Date: 20230317
  Receipt Date: 20230317
  Transmission Date: 20230417
  Serious: Yes (Hospitalization)
  Sender: FDA-Public Use
  Company Number: None

PATIENT
  Age: 60 Year
  Sex: Female
  Weight: 116.12 kg

DRUGS (22)
  1. CAPECITABINE [Suspect]
     Active Substance: CAPECITABINE
     Indication: Breast cancer female
     Dosage: FREQUENCY : TWICE A DAY;?
     Route: 048
  2. ALLOPURINOL [Concomitant]
     Active Substance: ALLOPURINOL
  3. ALPRAZOLAM [Concomitant]
     Active Substance: ALPRAZOLAM
  4. BIOTIN [Concomitant]
     Active Substance: BIOTIN
  5. CLONIDINE [Concomitant]
     Active Substance: CLONIDINE
  6. CLOPIDOGREL [Concomitant]
     Active Substance: CLOPIDOGREL BISULFATE
  7. FUROSEMIDE [Concomitant]
     Active Substance: FUROSEMIDE
  8. HYDROCODONE [Concomitant]
     Active Substance: HYDROCODONE
  9. MELATONIN [Concomitant]
     Active Substance: MELATONIN
  10. MIRTAZAPINE [Concomitant]
     Active Substance: MIRTAZAPINE
  11. MORPHINE [Concomitant]
     Active Substance: MORPHINE
  12. NORCO [Concomitant]
     Active Substance: ACETAMINOPHEN\HYDROCODONE BITARTRATE
  13. ONDANSETRON [Concomitant]
     Active Substance: ONDANSETRON
  14. PRAVASTATIN [Concomitant]
     Active Substance: PRAVASTATIN
  15. ROPINIROLE [Concomitant]
     Active Substance: ROPINIROLE
  16. SPIRIVA [Concomitant]
     Active Substance: TIOTROPIUM BROMIDE MONOHYDRATE
  17. TRAMADOL [Concomitant]
     Active Substance: TRAMADOL
  18. TUKYSA [Concomitant]
     Active Substance: TUCATINIB
  19. VENLAFAXINE, [Concomitant]
  20. VENTOLIN, [Concomitant]
  21. VITAMIN B12 [Concomitant]
     Active Substance: CYANOCOBALAMIN
  22. VITAMIN D3 [Concomitant]
     Active Substance: CHOLECALCIFEROL

REACTIONS (1)
  - Dyspnoea [None]

NARRATIVE: CASE EVENT DATE: 20230313
